FAERS Safety Report 4779540-1 (Version None)
Quarter: 2005Q3

REPORT INFORMATION
  Report Type: 
  Country: None (occurrence: None)
  Receive Date: 20050914
  Receipt Date: 20040908
  Transmission Date: 20060218
  Serious: Yes (Disabling)
  Sender: FDA-Public Use
  Company Number: 163-20785-04060417

PATIENT
  Age: 83 Year
  Sex: Male

DRUGS (6)
  1. THALOMID [Suspect]
     Indication: MULTIPLE MYELOMA
     Dosage: 50 MG, QHS, ORAL
     Route: 048
     Dates: start: 20040512, end: 20040521
  2. DECADRON [Concomitant]
  3. AXID [Concomitant]
  4. VITAMIN C (ASCORBIC ACID) [Concomitant]
  5. IRON (IRON) [Concomitant]
  6. LORTAB [Concomitant]

REACTIONS (2)
  - ASTHENIA [None]
  - HEADACHE [None]
